FAERS Safety Report 6204745-2 (Version None)
Quarter: 2009Q2

REPORT INFORMATION
  Report Type: 
  Country: None (occurrence: None)
  Receive Date: 20090527
  Receipt Date: 20090520
  Transmission Date: 20091009
  Serious: Yes (Other)
  Sender: FDA-Public Use
  Company Number: US-JNJCH-2009014139

PATIENT
  Age: 49 Year
  Sex: Female

DRUGS (1)
  1. LUBRIDERM DAILY MOISTURE FRAGRANCE FREE [Suspect]
     Indication: DRY SKIN
     Dosage: TEXT:UNSPECIFIED 1X DAY ON LEGS 6-7X DAY HAND
     Route: 061
     Dates: start: 20090519, end: 20090519

REACTIONS (1)
  - ASTHMA [None]
